FAERS Safety Report 23996358 (Version 2)
Quarter: 2024Q3

REPORT INFORMATION
  Report Type: Spontaneous
  Country: JP (occurrence: None)
  Receive Date: 20240620
  Receipt Date: 20240704
  Transmission Date: 20241017
  Serious: Yes (Hospitalization, Other)
  Sender: ASTRAZENECA
  Company Number: 2024A042194

PATIENT
  Age: 71 Year
  Sex: Female

DRUGS (5)
  1. IMFINZI [Suspect]
     Active Substance: DURVALUMAB
     Indication: Non-small cell lung cancer
     Route: 041
     Dates: start: 20231116, end: 20231228
  2. IMFINZI [Suspect]
     Active Substance: DURVALUMAB
     Indication: Non-small cell lung cancer
     Route: 041
     Dates: start: 20240111, end: 20240111
  3. ALLOID G [Concomitant]
     Active Substance: SODIUM ALGINATE
     Route: 048
     Dates: start: 20230919, end: 20240208
  4. CALONAL [Concomitant]
     Active Substance: ACETAMINOPHEN
     Route: 048
     Dates: start: 20230919, end: 20240208
  5. LOXOPROFEN [Concomitant]
     Active Substance: LOXOPROFEN
     Dosage: AS REQUIRED
     Route: 048

REACTIONS (3)
  - Hepatic function abnormal [Recovered/Resolved]
  - Pulmonary toxicity [Recovering/Resolving]
  - Rash [Not Recovered/Not Resolved]

NARRATIVE: CASE EVENT DATE: 20240208
